FAERS Safety Report 8833562 (Version 1)
Quarter: 2012Q4

REPORT INFORMATION
  Report Type: 
  Country: US (occurrence: US)
  Receive Date: 20121010
  Receipt Date: 20121010
  Transmission Date: 20130627
  Serious: No
  Sender: FDA-Public Use
  Company Number: US-009507513-1210USA001680

PATIENT
  Sex: Female

DRUGS (1)
  1. AZASITE [Suspect]
     Indication: CONJUNCTIVITIS INFECTIVE
     Dosage: 1 drop in each eye twice daily
     Route: 031
     Dates: start: 20120929

REACTIONS (4)
  - Drug dose omission [Unknown]
  - Product quality issue [Unknown]
  - No adverse event [Unknown]
  - Exposure during pregnancy [Unknown]
